FAERS Safety Report 19289670 (Version 7)
Quarter: 2021Q3

REPORT INFORMATION
  Report Type: Report from Study
  Country: US (occurrence: US)
  Receive Date: 20210522
  Receipt Date: 20210924
  Transmission Date: 20211014
  Serious: Yes (Other)
  Sender: FDA-Public Use
  Company Number: NVSC2021US108078

PATIENT
  Sex: Female

DRUGS (1)
  1. ENTRESTO [Suspect]
     Active Substance: SACUBITRIL\VALSARTAN
     Indication: PRODUCT USED FOR UNKNOWN INDICATION
     Dosage: 1 DF, BID (24/26MG)
     Route: 048

REACTIONS (6)
  - Product dose omission issue [Unknown]
  - Asthenia [Unknown]
  - Atrial fibrillation [Unknown]
  - Feeling cold [Unknown]
  - Hypokinesia [Unknown]
  - Arthralgia [Unknown]
